FAERS Safety Report 5491303-0 (Version None)
Quarter: 2007Q4

REPORT INFORMATION
  Report Type: 
  Country: None (occurrence: None)
  Receive Date: 20071019
  Receipt Date: 20071018
  Transmission Date: 20080405
  Serious: Yes (Life-Threatening, Hospitalization)
  Sender: FDA-Public Use
  Company Number: IT-BOEHRINGER INGELHEIM PHARMACEUTICALS, INC.-2007-DE-06062GD

PATIENT
  Age: 3 Year
  Sex: Male

DRUGS (8)
  1. IPRATROPIUM BROMIDE [Suspect]
     Indication: STATUS ASTHMATICUS
     Route: 055
  2. CLARITHROMYCIN [Suspect]
     Indication: STATUS ASTHMATICUS
     Route: 042
  3. AMINOPHYLLINE [Suspect]
     Indication: STATUS ASTHMATICUS
     Route: 042
  4. ALBUTEROL [Suspect]
     Indication: STATUS ASTHMATICUS
     Route: 055
  5. ALBUTEROL [Suspect]
     Dosage: 0.2 MCG/KG/MIN UP TO 2 MCG/KG/MIN
     Route: 042
  6. METHYLPREDNISOLONE [Suspect]
     Indication: STATUS ASTHMATICUS
     Dosage: 4 MG/KG
     Route: 042
  7. CEFOTAXIME SODIUM [Suspect]
     Indication: STATUS ASTHMATICUS
     Route: 042
  8. MAGNESIUM SULFATE [Suspect]
     Indication: STATUS ASTHMATICUS
     Dosage: 40 MG/KG
     Route: 042

REACTIONS (1)
  - DRUG INEFFECTIVE [None]
